FAERS Safety Report 7439409-0 (Version None)
Quarter: 2011Q2

REPORT INFORMATION
  Report Type: 
  Country: None (occurrence: None)
  Receive Date: 20110427
  Receipt Date: 20110414
  Transmission Date: 20111010
  Serious: Yes (Hospitalization)
  Sender: FDA-Public Use
  Company Number: FR-EISAI INC-E3810-04615-SPO-FR

PATIENT
  Age: 61 Year
  Sex: Male

DRUGS (6)
  1. INEGY [Suspect]
     Route: 048
     Dates: start: 20091001, end: 20100501
  2. COVERSYL [Suspect]
     Route: 048
     Dates: start: 20081001
  3. PARIET (RABEPRAZOLE) [Suspect]
     Dosage: UNKNOWN
     Route: 048
     Dates: start: 20040101
  4. CARVEDILOL [Suspect]
     Route: 048
     Dates: start: 20081001
  5. KARDEGIC [Suspect]
     Route: 048
     Dates: start: 20080101
  6. PREVISCAN [Suspect]
     Route: 048
     Dates: start: 20080101

REACTIONS (1)
  - PUSTULAR PSORIASIS [None]
